FAERS Safety Report 25118331 (Version 4)
Quarter: 2025Q2

REPORT INFORMATION
  Report Type: Spontaneous
  Country: US (occurrence: US)
  Receive Date: 20250325
  Receipt Date: 20250509
  Transmission Date: 20250717
  Serious: No
  Sender: PFIZER
  Company Number: US-PFIZER INC-202500062183

PATIENT
  Age: 13 Year
  Sex: Female
  Weight: 35.38 kg

DRUGS (4)
  1. GENOTROPIN [Suspect]
     Active Substance: SOMATROPIN
     Indication: Growth hormone deficiency
     Dosage: 1.4 MG, ALTERNATE DAY (1.4 MG, ONE DAY AND 1.6 MG, ANOTHER DAY FOR AN AVERAGE OF 1.5 MG)
     Dates: start: 20250305
  2. GENOTROPIN [Suspect]
     Active Substance: SOMATROPIN
     Indication: Growth hormone deficiency
     Dosage: 1.6 MG, ALTERNATE DAY (1.4 MG, ONE DAY AND 1.6 MG, ANOTHER DAY FOR AN AVERAGE OF 1.5 MG)
     Dates: start: 20250305
  3. LARIN 1/20 [Concomitant]
     Active Substance: ETHINYL ESTRADIOL\NORETHINDRONE ACETATE
     Indication: Ovarian failure
     Dosage: 1 DF, DAILY (1/20 MG MCG TABLET ONE PER DAY BY MOUTH)
     Route: 048
  4. LARIN 1/20 [Concomitant]
     Active Substance: ETHINYL ESTRADIOL\NORETHINDRONE ACETATE
     Indication: Contraception

REACTIONS (5)
  - Injection site discomfort [Unknown]
  - Drug dose omission by device [Unknown]
  - Accidental exposure to product [Unknown]
  - Exposure via skin contact [Unknown]
  - Device leakage [Unknown]

NARRATIVE: CASE EVENT DATE: 20250301
